FAERS Safety Report 13605433 (Version 2)
Quarter: 2017Q2

REPORT INFORMATION
  Report Type: Spontaneous
  Country: US (occurrence: US)
  Receive Date: 20170602
  Receipt Date: 20170609
  Transmission Date: 20170830
  Serious: Yes (Hospitalization, Other)
  Sender: FDA-Public Use
  Company Number: US-009507513-1705USA015453

PATIENT
  Age: 85 Year

DRUGS (4)
  1. VELCADE [Suspect]
     Active Substance: BORTEZOMIB
     Indication: PLASMA CELL MYELOMA
     Dosage: 2.29 MG, TWICE WEEKLY
     Route: 042
     Dates: start: 20150112
  2. DECADRON [Suspect]
     Active Substance: DEXAMETHASONE
     Indication: PLASMA CELL MYELOMA
     Dosage: 20 MG, UNK, PRIOR TO CHEMOTHERAPY
     Route: 048
     Dates: start: 20150112
  3. VELCADE [Suspect]
     Active Substance: BORTEZOMIB
     Dosage: 1.77 (UNIT NOT PROVIDED), TWICE WEEKLY
     Route: 058
     Dates: start: 20160711, end: 20160929
  4. DECADRON [Suspect]
     Active Substance: DEXAMETHASONE
     Dosage: 20 MG, WEEKLY
     Route: 048
     Dates: start: 20160711, end: 20160929

REACTIONS (3)
  - Haemorrhage urinary tract [Recovered/Resolved]
  - Transient ischaemic attack [Recovered/Resolved]
  - Haematuria [Recovered/Resolved]

NARRATIVE: CASE EVENT DATE: 20150304
